FAERS Safety Report 7045798-1 (Version None)
Quarter: 2010Q4

REPORT INFORMATION
  Report Type: 
  Country: None (occurrence: None)
  Receive Date: 20101014
  Receipt Date: 20101005
  Transmission Date: 20110411
  Serious: Yes (Other)
  Sender: FDA-Public Use
  Company Number: US-JNJFOC-20101001969

PATIENT
  Sex: Male
  Weight: 96.16 kg

DRUGS (3)
  1. DURAGESIC-100 [Suspect]
     Indication: PAIN
     Route: 062
  2. DURAGESIC-100 [Suspect]
     Route: 062
  3. FELODIPINE [Concomitant]
     Indication: HYPERTENSION
     Route: 048

REACTIONS (6)
  - BLOOD CHOLESTEROL INCREASED [None]
  - DRUG ADMINISTERED AT INAPPROPRIATE SITE [None]
  - PRODUCT ADHESION ISSUE [None]
  - PRODUCT QUALITY ISSUE [None]
  - THYROID DISORDER [None]
  - WRONG TECHNIQUE IN DRUG USAGE PROCESS [None]
